FAERS Safety Report 5719251-9 (Version None)
Quarter: 2008Q2

REPORT INFORMATION
  Report Type: 
  Country: None (occurrence: None)
  Receive Date: 20080428
  Receipt Date: 20080428
  Transmission Date: 20081010
  Serious: Yes (Life-Threatening)
  Sender: FDA-Public Use
  Company Number: None

PATIENT
  Age: 47 Year
  Sex: Female

DRUGS (1)
  1. HEPARIN [Suspect]
     Dates: start: 20080206, end: 20080214

REACTIONS (6)
  - BLOOD DISORDER [None]
  - HEMIPARESIS [None]
  - INFECTION [None]
  - LIVER DISORDER [None]
  - PLATELET COUNT DECREASED [None]
  - SPEECH DISORDER [None]
